FAERS Safety Report 23551322 (Version 2)
Quarter: 2024Q1

REPORT INFORMATION
  Report Type: Spontaneous
  Country: ES (occurrence: ES)
  Receive Date: 20240222
  Receipt Date: 20240226
  Transmission Date: 20240409
  Serious: Yes (Other)
  Sender: FDA-Public Use
  Company Number: ES-JNJFOC-20240251297

PATIENT
  Age: 80 Year
  Sex: Female

DRUGS (1)
  1. SPRAVATO [Suspect]
     Active Substance: ESKETAMINE
     Indication: Product used for unknown indication
     Dosage: MAINTENANCE DOSE:  ONLY TWO DAYS WAS ADMINISTERED

REACTIONS (1)
  - Neoplasm malignant [Unknown]
